FAERS Safety Report 6970536-8 (Version None)
Quarter: 2010Q3

REPORT INFORMATION
  Report Type: 
  Country: None (occurrence: None)
  Receive Date: 20100908
  Receipt Date: 20100903
  Transmission Date: 20110219
  Serious: Yes (Other)
  Sender: FDA-Public Use
  Company Number: US-GENZYME-CLOF-1001052

PATIENT
  Sex: Female
  Weight: 72.3 kg

DRUGS (15)
  1. CLOFARABINE [Suspect]
     Indication: LEUKAEMIA
     Dosage: 52 MG/M2, QDX5
     Route: 042
     Dates: start: 20100609, end: 20100613
  2. CLOFARABINE [Suspect]
     Dosage: 52 MG/M2, QDX5
     Route: 042
     Dates: start: 20100628, end: 20100702
  3. CYTARABINE [Suspect]
     Indication: LEUKAEMIA
     Dosage: 1000 MG/M2, QDX5
     Route: 042
     Dates: start: 20100609, end: 20100613
  4. CYTARABINE [Suspect]
     Dosage: 70 MG, ONCE
     Route: 037
     Dates: start: 20100608, end: 20100608
  5. CYTARABINE [Suspect]
     Dosage: 1000 MG/M2, UNK
     Route: 042
     Dates: start: 20100628
  6. LEVAQUIN [Concomitant]
     Indication: PRODUCT USED FOR UNKNOWN INDICATION
  7. PENTAMIDINE ISETHIONATE [Concomitant]
     Indication: ANTIFUNGAL PROPHYLAXIS
     Dosage: 300 MG, Q4W
     Route: 055
     Dates: start: 20100618, end: 20100618
  8. FLUCONAZOLE [Concomitant]
     Indication: ANTIFUNGAL PROPHYLAXIS
     Dosage: 200 MG, QD
     Route: 048
     Dates: start: 20100615, end: 20100711
  9. VALACYCLOVIR [Concomitant]
     Indication: ORAL DISORDER
     Dosage: 1000 MG, TID
     Route: 048
     Dates: start: 20100618, end: 20100621
  10. LEVOFLOXACIN [Concomitant]
     Indication: PYREXIA
     Dosage: 500 MG, QD
     Route: 042
     Dates: start: 20100610, end: 20100616
  11. LEVOFLOXACIN [Concomitant]
     Indication: NEUTROPENIA
  12. HYDROCORTISONE SODIUM SUCCINATE [Concomitant]
     Indication: PREMEDICATION
     Dosage: 125 MG, UNK
     Route: 042
     Dates: start: 20100624, end: 20100629
  13. KETAMINE HCL [Concomitant]
     Indication: SEDATION
     Dosage: 500 MG, ONCE
     Route: 042
     Dates: start: 20100624, end: 20100624
  14. METHOTREXATE [Concomitant]
     Indication: CHEMOTHERAPY
     Dosage: 12 MG, ONCE
     Route: 042
     Dates: start: 20100624, end: 20100624
  15. MIDAZOLAM HCL [Concomitant]
     Indication: SEDATION
     Dosage: 5 MG, ONCE
     Route: 042
     Dates: start: 20100624, end: 20100624

REACTIONS (1)
  - LIPASE INCREASED [None]
